FAERS Safety Report 6740561-0 (Version None)
Quarter: 2010Q2

REPORT INFORMATION
  Report Type: 
  Country: None (occurrence: None)
  Receive Date: 20100525
  Receipt Date: 20100518
  Transmission Date: 20101027
  Serious: Yes (Other)
  Sender: FDA-Public Use
  Company Number: US-AMGEN-QUU405675

PATIENT
  Sex: Female
  Weight: 90 kg

DRUGS (11)
  1. NPLATE [Suspect]
     Indication: IDIOPATHIC THROMBOCYTOPENIC PURPURA
     Dates: start: 20090123, end: 20100304
  2. CORTICOSTEROIDS [Concomitant]
     Dates: start: 20081118
  3. RITUXAN [Concomitant]
     Dates: start: 20090102, end: 20090109
  4. DEXAMETHASONE [Concomitant]
     Route: 042
     Dates: start: 20100302, end: 20100310
  5. ULTRAM [Concomitant]
     Route: 048
  6. PLAQUENIL [Concomitant]
     Route: 048
  7. PREGABALIN [Concomitant]
     Route: 048
  8. IBUPROFEN [Concomitant]
     Route: 048
  9. DIPHENHYDRAMINE [Concomitant]
     Route: 048
  10. OMEPRAZOLE [Concomitant]
     Route: 048
  11. LOTREL [Concomitant]
     Route: 048

REACTIONS (10)
  - BONE PAIN [None]
  - CONTUSION [None]
  - FATIGUE [None]
  - HERPES ZOSTER [None]
  - PAIN [None]
  - PARAESTHESIA [None]
  - RASH [None]
  - SINUS CONGESTION [None]
  - THERAPEUTIC RESPONSE DECREASED [None]
  - THROMBOCYTOPENIA [None]
